FAERS Safety Report 16401628 (Version 1)
Quarter: 2019Q2

REPORT INFORMATION
  Report Type: Spontaneous
  Country: US (occurrence: US)
  Receive Date: 20190606
  Receipt Date: 20190606
  Transmission Date: 20190711
  Serious: No
  Sender: FDA-Public Use
  Company Number: US-PTC THERAPEUTICS, INC.-US-2019PTC000770

PATIENT
  Sex: Male

DRUGS (1)
  1. EMFLAZA [Suspect]
     Active Substance: DEFLAZACORT
     Indication: MUSCULAR DYSTROPHY
     Dosage: 90 MG, ON SATURDAY AND SUNDAY ONLY
     Route: 048
     Dates: start: 20170718

REACTIONS (3)
  - Erythema [Unknown]
  - Off label use [Unknown]
  - Swelling face [Unknown]
